FAERS Safety Report 13968881 (Version 1)
Quarter: 2017Q3

REPORT INFORMATION
  Report Type: Spontaneous
  Country: US (occurrence: US)
  Receive Date: 20170914
  Receipt Date: 20170914
  Transmission Date: 20171128
  Serious: Yes (Hospitalization)
  Sender: FDA-Public Use
  Company Number: US-PFIZER INC-2016SE80515

PATIENT
  Age: 51 Year
  Sex: Female

DRUGS (1)
  1. MEROPENEM. [Suspect]
     Active Substance: MEROPENEM
     Indication: ARTHRITIS BACTERIAL
     Dosage: UNK
     Route: 042

REACTIONS (2)
  - Dermatosis [Recovered/Resolved]
  - Pulmonary eosinophilia [Recovered/Resolved]
